FAERS Safety Report 5361918-9 (Version None)
Quarter: 2007Q2

REPORT INFORMATION
  Report Type: 
  Country: None (occurrence: None)
  Receive Date: 20070614
  Receipt Date: 20070530
  Transmission Date: 20071010
  Serious: Yes (Hospitalization)
  Sender: FDA-Public Use
  Company Number: 2007US001311

PATIENT
  Age: 25 Year
  Sex: Female

DRUGS (1)
  1. AMBISOME [Suspect]
     Dosage: 50 MG
     Dates: start: 20070515, end: 20070515

REACTIONS (7)
  - DYSPNOEA [None]
  - ERYTHEMA [None]
  - HYPERHIDROSIS [None]
  - HYPOTENSION [None]
  - LUNG INFECTION [None]
  - OXYGEN SATURATION DECREASED [None]
  - PALLOR [None]
